FAERS Safety Report 11362660 (Version 1)
Quarter: 2015Q3

REPORT INFORMATION
  Report Type: Spontaneous
  Country: DE (occurrence: DE)
  Receive Date: 20150810
  Receipt Date: 20150810
  Transmission Date: 20151125
  Serious: Yes (Other)
  Sender: FDA-Public Use
  Company Number: DE-ELI_LILLY_AND_COMPANY-DE201507010224

PATIENT
  Age: 40 Year
  Sex: Male

DRUGS (11)
  1. ABILIFY [Suspect]
     Active Substance: ARIPIPRAZOLE
     Dosage: 30 MG, QD
     Route: 048
     Dates: start: 20091201
  2. ABILIFY [Suspect]
     Active Substance: ARIPIPRAZOLE
     Dosage: 20 MG, QD
     Route: 048
     Dates: start: 20091123, end: 20091201
  3. DIAZEPAM. [Interacting]
     Active Substance: DIAZEPAM
     Dosage: 14 MG, QD
     Route: 048
     Dates: start: 20091216, end: 20091224
  4. DIAZEPAM. [Interacting]
     Active Substance: DIAZEPAM
     Dosage: 7 MG, QD
     Route: 048
     Dates: start: 20100105, end: 20100108
  5. DIAZEPAM. [Interacting]
     Active Substance: DIAZEPAM
     Dosage: 9 MG, QD
     Route: 048
     Dates: start: 20091224, end: 20100105
  6. ABILIFY [Suspect]
     Active Substance: ARIPIPRAZOLE
     Indication: PRODUCT USED FOR UNKNOWN INDICATION
     Dosage: 15 MG, QD
     Route: 048
     Dates: start: 20091119, end: 20091123
  7. DIAZEPAM. [Interacting]
     Active Substance: DIAZEPAM
     Dosage: 20 MG, QD
     Route: 048
     Dates: start: 20091203, end: 20091216
  8. DIAZEPAM. [Interacting]
     Active Substance: DIAZEPAM
     Dosage: 5 MG, QD
     Route: 048
     Dates: start: 20100108
  9. ZYPREXA [Interacting]
     Active Substance: OLANZAPINE
     Indication: PRODUCT USED FOR UNKNOWN INDICATION
     Dosage: 40 MG, QD
     Route: 048
     Dates: start: 20091117, end: 20091216
  10. DIAZEPAM. [Interacting]
     Active Substance: DIAZEPAM
     Indication: PRODUCT USED FOR UNKNOWN INDICATION
     Dosage: 40 MG, QD
     Route: 048
     Dates: start: 20091117, end: 20091203
  11. ZYPREXA [Interacting]
     Active Substance: OLANZAPINE
     Dosage: 30 MG, QD
     Route: 048
     Dates: start: 20091216

REACTIONS (4)
  - Overdose [Unknown]
  - Hepatic enzyme increased [Recovering/Resolving]
  - Hepatic function abnormal [Unknown]
  - Drug interaction [Unknown]

NARRATIVE: CASE EVENT DATE: 20091117
